FAERS Safety Report 8186652-1 (Version None)
Quarter: 2012Q1

REPORT INFORMATION
  Report Type: 
  Country: None (occurrence: None)
  Receive Date: 20120302
  Receipt Date: 20120302
  Transmission Date: 20120608
  Serious: Yes (Hospitalization)
  Sender: FDA-Public Use
  Company Number: None

PATIENT
  Sex: Female
  Weight: 44.27 kg

DRUGS (1)
  1. CISPLATIN [Suspect]
     Dosage: 68 MG

REACTIONS (5)
  - DEHYDRATION [None]
  - CULTURE URINE POSITIVE [None]
  - DIARRHOEA [None]
  - STAPHYLOCOCCAL INFECTION [None]
  - BLOOD CREATININE INCREASED [None]
